FAERS Safety Report 12256869 (Version 3)
Quarter: 2016Q2

REPORT INFORMATION
  Report Type: Spontaneous
  Country: US (occurrence: US)
  Receive Date: 20160412
  Receipt Date: 20160502
  Transmission Date: 20160815
  Serious: Yes (Hospitalization, Other)
  Sender: FDA-Public Use
  Company Number: US-GLAXOSMITHKLINE-US2016047621

PATIENT
  Sex: Male

DRUGS (3)
  1. INCRUSE ELLIPTA [Suspect]
     Active Substance: UMECLIDINIUM BROMIDE
     Dosage: 62.5 UG, UNK
  2. GABAPENTIN. [Concomitant]
     Active Substance: GABAPENTIN
  3. INCRUSE ELLIPTA [Suspect]
     Active Substance: UMECLIDINIUM BROMIDE
     Indication: DYSPNOEA
     Dosage: UNK
     Dates: start: 201412

REACTIONS (3)
  - Fall [Recovered/Resolved]
  - Living in residential institution [Unknown]
  - Hospitalisation [Unknown]

NARRATIVE: CASE EVENT DATE: 2015
